FAERS Safety Report 25136200 (Version 1)
Quarter: 2025Q1

REPORT INFORMATION
  Report Type: Spontaneous
  Country: US (occurrence: US)
  Receive Date: 20250328
  Receipt Date: 20250328
  Transmission Date: 20250409
  Serious: No
  Sender: NOVAST LABORATORIES LTD
  Company Number: US-NOVAST LABORATORIES INC.-2024NOV000219

PATIENT

DRUGS (1)
  1. METOPROLOL SUCCINATE [Suspect]
     Active Substance: METOPROLOL SUCCINATE
     Indication: Product used for unknown indication
     Route: 065

REACTIONS (6)
  - Throat irritation [Unknown]
  - Nasal discomfort [Unknown]
  - Chest discomfort [Unknown]
  - Drug ineffective [Unknown]
  - Headache [Unknown]
  - Product formulation issue [Unknown]
